FAERS Safety Report 4323096-4 (Version None)
Quarter: 2004Q1

REPORT INFORMATION
  Report Type: 
  Country: None (occurrence: None)
  Receive Date: 20040322
  Receipt Date: 20040304
  Transmission Date: 20041129
  Serious: Yes (Other)
  Sender: FDA-Public Use
  Company Number: 193816

PATIENT
  Age: 49 Year
  Sex: Female
  Weight: 68.0396 kg

DRUGS (6)
  1. AVONEX [Suspect]
     Indication: MULTIPLE SCLEROSIS
     Dosage: 30 MCG QW IM
     Route: 030
     Dates: start: 20031110
  2. LEXAPRO [Concomitant]
  3. DITROPAN [Concomitant]
  4. BACLOFEN [Concomitant]
  5. NEURONTIN [Concomitant]
  6. TIZANIDINE HCL [Concomitant]

REACTIONS (3)
  - CONDITION AGGRAVATED [None]
  - MULTIPLE SCLEROSIS [None]
  - RENAL CELL CARCINOMA STAGE UNSPECIFIED [None]
